FAERS Safety Report 5378096-2 (Version None)
Quarter: 2007Q3

REPORT INFORMATION
  Report Type: 
  Country: None (occurrence: None)
  Receive Date: 20070702
  Receipt Date: 20070702
  Transmission Date: 20080115
  Serious: Yes (Death, Hospitalization)
  Sender: FDA-Public Use
  Company Number: None

PATIENT
  Age: 94 Year
  Sex: Female
  Weight: 56.6996 kg

DRUGS (14)
  1. BARIUM ALUMINUM SUSPENSION [Suspect]
     Indication: DIAGNOSTIC PROCEDURE
     Dosage: X1
     Dates: start: 20070201
  2. LISINOPRIL [Concomitant]
  3. VITAMIN B-12 [Concomitant]
  4. OXYBUTYNIN CHLORIDE [Concomitant]
  5. FOLIC ACID [Concomitant]
  6. FUROSEMIDE [Concomitant]
  7. SYNTHROID [Concomitant]
  8. POTASSIUM ACETATE [Concomitant]
  9. WARFARIN SODIUM [Concomitant]
  10. LORAZEPAM [Concomitant]
  11. SINEMET [Concomitant]
  12. ADVAIR DISKUS 100/50 [Concomitant]
  13. COMBIVENT [Concomitant]
  14. COMPAZINE [Concomitant]

REACTIONS (9)
  - ABDOMINAL DISTENSION [None]
  - ADHESION [None]
  - DIARRHOEA [None]
  - DIVERTICULITIS [None]
  - GASTROENTERITIS ESCHERICHIA COLI [None]
  - INTESTINAL OBSTRUCTION [None]
  - LETHARGY [None]
  - PNEUMONIA [None]
  - VOMITING [None]
